FAERS Safety Report 6684485-6 (Version None)
Quarter: 2010Q2

REPORT INFORMATION
  Report Type: 
  Country: None (occurrence: None)
  Receive Date: 20100416
  Receipt Date: 20100412
  Transmission Date: 20101027
  Serious: Yes (Hospitalization)
  Sender: FDA-Public Use
  Company Number: DE-BRISTOL-MYERS SQUIBB COMPANY-15059694

PATIENT
  Age: 85 Year
  Sex: Female

DRUGS (6)
  1. COAPROVEL FILM-COATED TABS [Suspect]
     Indication: HYPERTENSION
     Route: 048
     Dates: start: 20090301, end: 20090615
  2. ALFACALCIDOL [Suspect]
     Indication: OSTEOPOROSIS
     Dosage: CAPSULE
     Route: 048
     Dates: start: 20060601, end: 20090615
  3. CALCIMAGON-D3 [Suspect]
     Indication: OSTEOPOROSIS
     Dosage: TABS; CHEWABLE
     Route: 048
     Dates: start: 20060601, end: 20090615
  4. CALCITRIOL [Suspect]
     Indication: OSTEOPOROSIS
     Route: 048
     Dates: start: 20060601, end: 20090616
  5. BONIVA [Concomitant]
     Dates: start: 20081101
  6. TORSEMIDE [Concomitant]
     Indication: HYPERTENSION
     Dates: start: 20090101, end: 20090605

REACTIONS (1)
  - HYPERCALCAEMIA [None]
